FAERS Safety Report 7232792-0 (Version None)
Quarter: 2011Q1

REPORT INFORMATION
  Report Type: 
  Country: None (occurrence: None)
  Receive Date: 20110110
  Receipt Date: 20101228
  Transmission Date: 20110831
  Serious: Yes (Hospitalization)
  Sender: FDA-Public Use
  Company Number: TPA2010A06245

PATIENT
  Age: 75 Year
  Sex: Male

DRUGS (6)
  1. ATEHEXAL (ATENOLOL) [Concomitant]
  2. RAMIPRIL [Concomitant]
  3. ADENURIC (FEBUXOSTAT) [Suspect]
     Indication: HYPERURICAEMIA
     Dosage: 80 MG (80 MG,1 IN 1 D) ORAL
     Route: 048
     Dates: start: 20101116, end: 20101202
  4. AVELOX [Suspect]
     Dosage: 400 MG (400 MG,1 IN 1 D)
     Dates: start: 20101120, end: 20101201
  5. VALORON N (NALOXONE HYDROCHLORIDE, TILIDINE HYDROCHLORIDE) [Concomitant]
  6. MARCUMAR [Suspect]

REACTIONS (1)
  - LEUKOCYTOCLASTIC VASCULITIS [None]
